FAERS Safety Report 19831474 (Version 1)
Quarter: 2021Q3

REPORT INFORMATION
  Report Type: Spontaneous
  Country: US (occurrence: US)
  Receive Date: 20210915
  Receipt Date: 20210915
  Transmission Date: 20211014
  Serious: Yes (Other)
  Sender: FDA-Public Use
  Company Number: None

PATIENT
  Age: 61 Year
  Sex: Female
  Weight: 102 kg

DRUGS (1)
  1. REGEN?COV [Suspect]
     Active Substance: CASIRIVIMAB\IMDEVIMAB
     Indication: COVID-19 TREATMENT
     Dates: start: 20210913

REACTIONS (5)
  - Dyspnoea [None]
  - Infusion related reaction [None]
  - Blood pressure increased [None]
  - Pain [None]
  - Pallor [None]

NARRATIVE: CASE EVENT DATE: 20210913
